FAERS Safety Report 11194730 (Version 4)
Quarter: 2016Q1

REPORT INFORMATION
  Report Type: Report from Study
  Country: DE (occurrence: DE)
  Receive Date: 20150617
  Receipt Date: 20160215
  Transmission Date: 20160525
  Serious: Yes (Hospitalization)
  Sender: FDA-Public Use
  Company Number: DE-ROCHE-1593454

PATIENT
  Age: 70 Year
  Sex: Female

DRUGS (12)
  1. FOLIC ACID. [Concomitant]
     Active Substance: FOLIC ACID
  2. SALBUTAMOL [Concomitant]
     Active Substance: ALBUTEROL
  3. DEKRISTOL [Concomitant]
     Active Substance: CHOLECALCIFEROL
  4. OXYCODON [Concomitant]
     Active Substance: OXYCODONE
  5. PANTOZOL [Concomitant]
     Active Substance: PANTOPRAZOLE SODIUM
  6. CODEIN [Concomitant]
     Active Substance: CODEINE
  7. AMINOSYN [Concomitant]
     Active Substance: ALANINE\ARGININE\GLYCINE\HISTIDINE\ISOLEUCINE\LEUCINE\LYSINE ACETATE\METHIONINE\PHENYLALANINE\PROLINE\SERINE\THREONINE\TRYPTOPHAN\TYROSINE\VALINE
  8. RITUXIMAB [Suspect]
     Active Substance: RITUXIMAB
     Indication: RHEUMATOID ARTHRITIS
     Dosage: LAST CYCLE OF 1000 MG RITUXIMAB PRIOR TO THE EVENT WAS ON 19/MAR/2014.
     Route: 042
  9. BERODUAL [Concomitant]
     Active Substance: FENOTEROL HYDROBROMIDE\IPRATROPIUM BROMIDE
  10. LEVODOPA [Concomitant]
     Active Substance: LEVODOPA
  11. LYRICA [Concomitant]
     Active Substance: PREGABALIN
  12. OXYGESIC [Concomitant]
     Active Substance: OXYCODONE

REACTIONS (14)
  - Urosepsis [Unknown]
  - Vaginal prolapse [Unknown]
  - Uterovaginal prolapse [Unknown]
  - Vulvovaginal candidiasis [Unknown]
  - Hiatus hernia [Unknown]
  - Hypochromic anaemia [Unknown]
  - Immunoglobulins decreased [Unknown]
  - Thermal burn [Unknown]
  - Micturition disorder [Unknown]
  - Staphylococcal infection [Unknown]
  - Haemorrhoids [Unknown]
  - Pneumonia escherichia [Unknown]
  - Septic shock [Unknown]
  - Uterine prolapse [Unknown]

NARRATIVE: CASE EVENT DATE: 20140912
